FAERS Safety Report 19171910 (Version 1)
Quarter: 2021Q2

REPORT INFORMATION
  Report Type: Spontaneous
  Country: US (occurrence: US)
  Receive Date: 20210422
  Receipt Date: 20210422
  Transmission Date: 20210717
  Serious: No
  Sender: FDA-Public Use
  Company Number: None

PATIENT
  Age: 55 Year
  Sex: Female
  Weight: 71.21 kg

DRUGS (1)
  1. TALTZ [Suspect]
     Active Substance: IXEKIZUMAB
     Indication: PSORIASIS
     Dosage: ININJECT 80MG (1 PEN) SUBCUTANEOUSLY AT WEEK 12  AS DIRECTED
     Route: 058
     Dates: start: 202011

REACTIONS (1)
  - Ear infection [None]
